FAERS Safety Report 5695435-3 (Version None)
Quarter: 2008Q2

REPORT INFORMATION
  Report Type: 
  Country: None (occurrence: None)
  Receive Date: 20080403
  Receipt Date: 20080327
  Transmission Date: 20081010
  Serious: Yes (Death, Hospitalization, Other)
  Sender: FDA-Public Use
  Company Number: 025554

PATIENT
  Age: 69 Year
  Sex: Male
  Weight: 82 kg

DRUGS (14)
  1. FLUDROCORTISONE ACETATE [Suspect]
  2. METFORMIN HYDROCHLORIDE [Suspect]
  3. WARFARIN SODIUM [Suspect]
  4. IRINOTECAN HCL [Suspect]
     Indication: GLIOBLASTOMA MULTIFORME
     Dosage: 125MG/M2, ON DAYS 1 + 15 OF 28-D, INTRAVENOUS
     Route: 042
     Dates: start: 20070817, end: 20080108
  5. BEVACIZUMAB(BEVACIZUMAB) [Suspect]
     Indication: GLIOBLASTOMA MULTIFORME
     Dosage: 10 MG/KG, ON DAYS 1 + 15 OF 28-DAY, INTRAVENOUS
     Route: 042
     Dates: start: 20070817, end: 20080108
  6. ENOXAPARIN SODIUM [Suspect]
  7. OXYCODONE HCL [Suspect]
  8. OXYCONTIN [Suspect]
  9. PAXIL [Suspect]
  10. PREDNISONE TAB [Suspect]
  11. PREVACID [Suspect]
  12. SYNTHROID [Suspect]
  13. TOPAMAX [Suspect]
  14. DECADRON [Concomitant]

REACTIONS (18)
  - BACK PAIN [None]
  - BLOOD GLUCOSE INCREASED [None]
  - CEREBRAL HAEMORRHAGE [None]
  - CEREBROVASCULAR ACCIDENT [None]
  - DEEP VEIN THROMBOSIS [None]
  - DISEASE RECURRENCE [None]
  - DYSARTHRIA [None]
  - ENCEPHALOPATHY [None]
  - GLIOBLASTOMA MULTIFORME [None]
  - HAEMATOCRIT DECREASED [None]
  - HAEMORRHAGE [None]
  - LYMPHOCYTE COUNT DECREASED [None]
  - NEUROPATHY PERIPHERAL [None]
  - PERIPHERAL MOTOR NEUROPATHY [None]
  - PLATELET COUNT DECREASED [None]
  - PROTHROMBIN TIME PROLONGED [None]
  - THROMBOSIS [None]
  - WEIGHT DECREASED [None]
